FAERS Safety Report 11685496 (Version 13)
Quarter: 2018Q3

REPORT INFORMATION
  Report Type: Spontaneous
  Country: US (occurrence: US)
  Receive Date: 20151030
  Receipt Date: 20180725
  Transmission Date: 20181010
  Serious: Yes (Congenital Anomaly, Other)
  Sender: FDA-Public Use
  Company Number: PHEH2015US021763

PATIENT
  Sex: Male

DRUGS (5)
  1. ONDANSETRON HYDROCHLORIDE. [Suspect]
     Active Substance: ONDANSETRON HYDROCHLORIDE
     Indication: FOETAL EXPOSURE DURING PREGNANCY
     Route: 064
  2. ONDANSETRON HYDROCHLORIDE. [Suspect]
     Active Substance: ONDANSETRON HYDROCHLORIDE
     Indication: FOETAL EXPOSURE DURING PREGNANCY
     Route: 064
  3. ONDANSETRON. [Suspect]
     Active Substance: ONDANSETRON
     Indication: FOETAL EXPOSURE DURING PREGNANCY
     Dosage: MOTHER DOSE: 8 MG Q6H
     Route: 064
  4. ZOFRAN [Suspect]
     Active Substance: ONDANSETRON HYDROCHLORIDE
     Indication: FOETAL EXPOSURE DURING PREGNANCY
     Route: 064
  5. ONDANSETRON DR REDDY [Suspect]
     Active Substance: ONDANSETRON
     Indication: FOETAL EXPOSURE DURING PREGNANCY
     Dosage: MOTHER DOSE: 4 MG Q6H
     Route: 064

REACTIONS (28)
  - Cleft lip and palate [Unknown]
  - Foetal exposure during pregnancy [Unknown]
  - Candida infection [Unknown]
  - Nasal congestion [Unknown]
  - Phenylketonuria [Unknown]
  - Bronchiolitis [Unknown]
  - Pain [Unknown]
  - Anxiety [Unknown]
  - Otitis media acute [Unknown]
  - Congenital anomaly [Unknown]
  - Anhedonia [Unknown]
  - Cough [Unknown]
  - Ear pain [Unknown]
  - Rhinitis allergic [Unknown]
  - Cellulitis [Unknown]
  - Injury [Unknown]
  - Acute sinusitis [Unknown]
  - Craniofacial dysostosis [Unknown]
  - Skull malformation [Unknown]
  - Wheezing [Unknown]
  - Pyrexia [Unknown]
  - Asthma [Unknown]
  - Eustachian tube dysfunction [Unknown]
  - Upper respiratory tract infection [Unknown]
  - Cerumen impaction [Unknown]
  - Otorrhoea [Unknown]
  - Laryngitis [Unknown]
  - Motor developmental delay [Unknown]
